FAERS Safety Report 9493969 (Version 1)
Quarter: 2013Q3

REPORT INFORMATION
  Report Type: Spontaneous
  Country: US (occurrence: US)
  Receive Date: 20130903
  Receipt Date: 20130903
  Transmission Date: 20140515
  Serious: No
  Sender: FDA-Public Use
  Company Number: US-009507513-1308USA009256

PATIENT
  Age: 64 Year
  Sex: Male

DRUGS (7)
  1. NASONEX [Suspect]
     Indication: SINUS HEADACHE
     Dosage: TWO SPRAYS EACH SIDE ONCE A DAY
     Route: 045
     Dates: start: 20130807
  2. NEXIUM [Concomitant]
     Dosage: UNK
     Route: 048
  3. XANAX [Concomitant]
  4. ASPIRIN [Concomitant]
  5. ASCORBIC ACID [Concomitant]
  6. NIACINAMIDE [Concomitant]
  7. OMEGA-3 MARINE TRIGLYCERIDES [Concomitant]

REACTIONS (2)
  - Retinal tear [Not Recovered/Not Resolved]
  - Photopsia [Not Recovered/Not Resolved]
